FAERS Safety Report 6359000-7 (Version None)
Quarter: 2009Q3

REPORT INFORMATION
  Report Type: 
  Country: None (occurrence: None)
  Receive Date: 20090916
  Receipt Date: 20090904
  Transmission Date: 20100115
  Serious: Yes (Hospitalization, Other)
  Sender: FDA-Public Use
  Company Number: BR-ELI_LILLY_AND_COMPANY-BR200907005038

PATIENT
  Sex: Female
  Weight: 60 kg

DRUGS (6)
  1. FORTEO [Suspect]
     Indication: OSTEOPOROSIS
     Dosage: 20 UG, DAILY (1/D)
     Route: 058
     Dates: start: 20090201
  2. PREDNISONE [Concomitant]
     Indication: ASTHMA
     Dosage: 40 MG, UNKNOWN
     Route: 065
  3. FORASEQ [Concomitant]
     Indication: ASTHMA
     Dosage: UNK, UNKNOWN
     Route: 065
  4. DESALEX [Concomitant]
     Indication: ASTHMA
     Dosage: UNK, UNKNOWN
     Route: 065
  5. ADALAT [Concomitant]
     Indication: HYPERTENSION
     Dosage: 25 MG, UNKNOWN
     Route: 065
  6. ALENDRONATE SODIUM [Concomitant]
     Indication: OSTEOPOROSIS
     Dosage: UNK, UNKNOWN
     Route: 065

REACTIONS (9)
  - BACK PAIN [None]
  - BODY HEIGHT DECREASED [None]
  - DEVICE DISLOCATION [None]
  - DIZZINESS [None]
  - INJECTION SITE EXTRAVASATION [None]
  - INJECTION SITE REACTION [None]
  - PAIN [None]
  - SPINAL FRACTURE [None]
  - WEIGHT DECREASED [None]
